FAERS Safety Report 5481053-9 (Version None)
Quarter: 2007Q4

REPORT INFORMATION
  Report Type: 
  Country: None (occurrence: None)
  Receive Date: 20071004
  Receipt Date: 20070928
  Transmission Date: 20080405
  Serious: Yes (Death, Other)
  Sender: FDA-Public Use
  Company Number: 163-21880-06030303

PATIENT
  Age: 52 Year
  Sex: Male

DRUGS (1)
  1. REVLIMID [Suspect]
     Indication: LEUKAEMIA
     Dosage: 5 MG, DAILY, OFF AND ON, ORAL
     Route: 048
     Dates: start: 20060215, end: 20060308

REACTIONS (1)
  - ACUTE MYELOID LEUKAEMIA [None]
